FAERS Safety Report 5055098-7 (Version None)
Quarter: 2006Q3

REPORT INFORMATION
  Report Type: 
  Country: None (occurrence: None)
  Receive Date: 20060719
  Receipt Date: 20050301
  Transmission Date: 20061208
  Serious: No
  Sender: FDA-Public Use
  Company Number: US-AMGEN-KDL118709

PATIENT
  Age: 95 Year
  Sex: Male
  Weight: 59 kg

DRUGS (1)
  1. PROCRIT [Suspect]
     Indication: PRE-EXISTING DISEASE
     Dates: start: 20050101

REACTIONS (1)
  - INJECTION SITE PAIN [None]
